FAERS Safety Report 23344074 (Version 2)
Quarter: 2024Q1

REPORT INFORMATION
  Report Type: Spontaneous
  Country: AU (occurrence: AU)
  Receive Date: 20231227
  Receipt Date: 20240117
  Transmission Date: 20240410
  Serious: Yes (Hospitalization, Other)
  Sender: FDA-Public Use
  Company Number: AU-BAXTER-2023BAX038956

PATIENT
  Sex: Female

DRUGS (6)
  1. SODIUM CHLORIDE [Suspect]
     Active Substance: SODIUM CHLORIDE
     Indication: Medication dilution
     Dosage: 472.5 ML NACL USED TO DILUTE 945 MG RITUXIMAB (2MG/ML)
     Route: 065
  2. SODIUM CHLORIDE [Suspect]
     Active Substance: SODIUM CHLORIDE
     Dosage: 250 ML NACL USED TO DILUTE 50 MG RITUXIMAB (0.2 MG/ML)
     Route: 065
  3. SODIUM CHLORIDE [Suspect]
     Active Substance: SODIUM CHLORIDE
     Dosage: 250 ML NACL USED TO DILUTE 5 MG RITUXIMAB (0.02 MG/ML)
     Route: 065
  4. RITUXIMAB [Suspect]
     Active Substance: RITUXIMAB
     Indication: Glomerulonephritis membranous
     Dosage: 945 MG RITUXIMAB DILUTED IN 472.5 ML NACL (2 MG/ML)
     Route: 065
  5. RITUXIMAB [Suspect]
     Active Substance: RITUXIMAB
     Dosage: 50 MG RITUXIMAB DILUTED IN 250 ML NACL (0.2 MG/ML)
     Route: 065
  6. RITUXIMAB [Suspect]
     Active Substance: RITUXIMAB
     Dosage: 5 MG RITUXIMAB DILUTED IN 250 ML NACL (0.02 MG/ML)
     Route: 065

REACTIONS (12)
  - Paraesthesia oral [Recovered/Resolved]
  - Tachycardia [Recovered/Resolved]
  - Chest discomfort [Recovered/Resolved]
  - Dyspepsia [Recovered/Resolved]
  - Arthralgia [Unknown]
  - Joint swelling [Unknown]
  - Malaise [Unknown]
  - Effusion [Unknown]
  - Human rhinovirus test positive [Unknown]
  - Pruritus [Recovered/Resolved]
  - Rash [Recovered/Resolved]
  - Chills [Unknown]
